FAERS Safety Report 4698391-X (Version None)
Quarter: 2005Q2

REPORT INFORMATION
  Report Type: 
  Country: None (occurrence: None)
  Receive Date: 20050621
  Receipt Date: 20050603
  Transmission Date: 20051028
  Serious: Yes (Other)
  Sender: FDA-Public Use
  Company Number: 215335

PATIENT
  Age: 45 Year
  Sex: Female

DRUGS (2)
  1. HERCEPTIN [Suspect]
     Indication: BREAST CANCER
     Dosage: 100 MG, 1/WEEK, IV DRIP
     Route: 041
     Dates: start: 20050427, end: 20050601
  2. TAXOL [Concomitant]

REACTIONS (5)
  - BALANCE DISORDER [None]
  - DEPRESSED LEVEL OF CONSCIOUSNESS [None]
  - FALL [None]
  - FEELING ABNORMAL [None]
  - FOOT FRACTURE [None]
